FAERS Safety Report 13768728 (Version 2)
Quarter: 2017Q3

REPORT INFORMATION
  Report Type: Report from Study
  Country: CO (occurrence: CO)
  Receive Date: 20170719
  Receipt Date: 20170920
  Transmission Date: 20171127
  Serious: Yes (Hospitalization)
  Sender: FDA-Public Use
  Company Number: PHHY2017CO103929

PATIENT
  Age: 16 Year
  Sex: Female
  Weight: 52 kg

DRUGS (2)
  1. EXJADE [Suspect]
     Active Substance: DEFERASIROX
     Indication: SICKLE CELL ANAEMIA
     Dosage: 500 MG, QD
     Route: 048
     Dates: start: 20160330
  2. FOLIC ACID. [Suspect]
     Active Substance: FOLIC ACID
     Indication: PRODUCT USED FOR UNKNOWN INDICATION
     Route: 065

REACTIONS (10)
  - Sickle cell anaemia with crisis [Unknown]
  - Depression [Unknown]
  - Haemoglobin decreased [Unknown]
  - Back pain [Unknown]
  - Ocular icterus [Unknown]
  - Pallor [Unknown]
  - Arthralgia [Unknown]
  - Pain in extremity [Unknown]
  - Lip discolouration [Unknown]
  - Chest pain [Unknown]

NARRATIVE: CASE EVENT DATE: 20170907
